FAERS Safety Report 7656071-2 (Version None)
Quarter: 2011Q3

REPORT INFORMATION
  Report Type: 
  Country: None (occurrence: None)
  Receive Date: 20110804
  Receipt Date: 20110720
  Transmission Date: 20111222
  Serious: Yes (Death, Hospitalization, Other)
  Sender: FDA-Public Use
  Company Number: US-ELI_LILLY_AND_COMPANY-US201008000494

PATIENT
  Sex: Female
  Weight: 44.444 kg

DRUGS (14)
  1. FORTEO [Suspect]
     Dosage: 20 UG, DAILY (1/D)
     Route: 065
  2. CETIRIZINE HCL [Concomitant]
     Dosage: 5 MG, QD
  3. FORTEO [Suspect]
     Dosage: 20 UG, DAILY (1/D)
     Route: 065
  4. CRESTOR [Concomitant]
     Dosage: 5 MG, QD
  5. FORTEO [Suspect]
     Dosage: 20 UG, DAILY (1/D)
     Route: 065
  6. FORTEO [Suspect]
     Indication: OSTEOPOROSIS
     Dosage: 20 UG, DAILY (1/D)
     Route: 065
     Dates: start: 20100601
  7. TOPROL-XL [Concomitant]
     Dosage: 50 MG, QD
  8. CLONIDINE [Concomitant]
     Dosage: 0.1 MG, BID
  9. VITAMIN D [Concomitant]
  10. FORTEO [Suspect]
     Dosage: 20 UG, QD
     Route: 065
     Dates: end: 20110610
  11. FIBER [Concomitant]
  12. TYLENOL                                 /SCH/ [Concomitant]
     Dosage: 1000 MG, PRN
  13. CALCIUM ACETATE [Concomitant]
  14. MULTI-VITAMIN [Concomitant]
     Dosage: UNK, QD

REACTIONS (10)
  - MULTI-ORGAN FAILURE [None]
  - DIARRHOEA [None]
  - RESPIRATORY FAILURE [None]
  - SCOLIOSIS [None]
  - INJECTION SITE PAIN [None]
  - MUSCLE SPASMS [None]
  - INCORRECT ROUTE OF DRUG ADMINISTRATION [None]
  - PAIN IN EXTREMITY [None]
  - PNEUMONIA [None]
  - KYPHOSIS [None]
